FAERS Safety Report 10217623 (Version 1)
Quarter: 2014Q2

REPORT INFORMATION
  Report Type: Report from Study
  Country: US (occurrence: US)
  Receive Date: 20140604
  Receipt Date: 20140604
  Transmission Date: 20141212
  Serious: Yes (Other)
  Sender: FDA-Public Use
  Company Number: PHEH2014US011197

PATIENT
  Sex: Male
  Weight: 99.77 kg

DRUGS (5)
  1. TOBI PODHALER [Suspect]
     Indication: CYSTIC FIBROSIS
     Dosage: 112 MG, BID
     Route: 055
  2. ZENPEP [Concomitant]
  3. PRO-AIR [Concomitant]
  4. ADVAIR [Concomitant]
  5. AQUADEKS [Concomitant]

REACTIONS (3)
  - Condition aggravated [Not Recovered/Not Resolved]
  - Cystic fibrosis [Not Recovered/Not Resolved]
  - Infection [Not Recovered/Not Resolved]
